FAERS Safety Report 4703640-5 (Version None)
Quarter: 2005Q2

REPORT INFORMATION
  Report Type: 
  Country: None (occurrence: None)
  Receive Date: 20050628
  Receipt Date: 20050613
  Transmission Date: 20051028
  Serious: Yes (Hospitalization)
  Sender: FDA-Public Use
  Company Number: USA040362638

PATIENT
  Age: 68 Year
  Sex: Female
  Weight: 63 kg

DRUGS (11)
  1. FORTEO [Suspect]
     Indication: OSTEOPOROSIS
     Dosage: 20 UG DAY
     Dates: start: 20040131
  2. HYZAAR [Concomitant]
  3. NEXIUM [Concomitant]
  4. CALCIUM WITH VITAMIN D [Concomitant]
  5. PRILOSEC (OMEPRAZOLE RATIOPHARM) [Concomitant]
  6. CELEBREX [Concomitant]
  7. PERCOCET [Concomitant]
  8. ALPRAZOLAM [Concomitant]
  9. ALBUTEROL [Concomitant]
  10. TYLENOL [Concomitant]
  11. VITAMIN E [Concomitant]

REACTIONS (10)
  - BACK PAIN [None]
  - BONE DENSITY DECREASED [None]
  - BRONCHITIS [None]
  - CHRONIC OBSTRUCTIVE AIRWAYS DISEASE EXACERBATED [None]
  - DRUG EFFECT DECREASED [None]
  - FEELING HOT [None]
  - HYPOXIA [None]
  - MUSCLE SPASMS [None]
  - MUSCULOSKELETAL PAIN [None]
  - PHARMACEUTICAL PRODUCT COMPLAINT [None]
